FAERS Safety Report 9019895 (Version 1)
Quarter: 2013Q1

REPORT INFORMATION
  Report Type: Spontaneous
  Country: IN (occurrence: IN)
  Receive Date: 20130118
  Receipt Date: 20130118
  Transmission Date: 20140127
  Serious: Yes (Other)
  Sender: FDA-Public Use
  Company Number: IN-JNJFOC-20130108984

PATIENT
  Age: 5 Year
  Sex: Male

DRUGS (7)
  1. TOPIRAMATE [Suspect]
     Indication: CONVULSION
     Route: 048
  2. VALPROATE [Suspect]
     Indication: CONVULSION
     Route: 065
  3. CARBAMAZEPINE [Suspect]
     Indication: CONVULSION
     Route: 065
  4. LEVETIRACETAM [Suspect]
     Indication: CONVULSION
     Route: 065
  5. PHENOBARBITONE [Suspect]
     Indication: CONVULSION
     Route: 065
  6. LAMOTRIGINE [Suspect]
     Indication: CONVULSION
     Route: 065
  7. CLONAZEPAM [Suspect]
     Indication: CONVULSION
     Route: 066

REACTIONS (2)
  - Encephalopathy [Recovering/Resolving]
  - Hyperammonaemia [Recovering/Resolving]
